FAERS Safety Report 20893069 (Version 1)
Quarter: 2022Q2

REPORT INFORMATION
  Report Type: Spontaneous
  Country: US (occurrence: US)
  Receive Date: 20220531
  Receipt Date: 20220531
  Transmission Date: 20220721
  Serious: No
  Sender: FDA-Public Use
  Company Number: US-CELGENE-USA-20211204903

PATIENT
  Age: 60 Year
  Sex: Female

DRUGS (7)
  1. REVLIMID [Suspect]
     Active Substance: LENALIDOMIDE
     Indication: Plasma cell myeloma
     Dosage: DOSE: 25 MILLIGRAM
     Route: 048
     Dates: start: 202109
  2. REVLIMID [Suspect]
     Active Substance: LENALIDOMIDE
     Dosage: 10 MILLIGRAM
     Route: 048
     Dates: start: 202111
  3. REVLIMID [Suspect]
     Active Substance: LENALIDOMIDE
     Dosage: DOSE: 15 MILLIGRAM, FREQ: ONCE DAILY FOR 21 DAYS ON AND 7 DAYS OFF
     Route: 048
     Dates: start: 202201
  4. CLINDAMYCIN [Concomitant]
     Active Substance: CLINDAMYCIN
     Indication: Multiple allergies
     Dosage: FREQUENCY TEXT: NOT PROVIDED
     Route: 048
  5. CODEINE [Concomitant]
     Active Substance: CODEINE
     Indication: Multiple allergies
     Dosage: FREQUENCY TEXT: NOT PROVIDED
     Route: 048
  6. MINOCYCLINE [Concomitant]
     Active Substance: MINOCYCLINE HYDROCHLORIDE
     Indication: Multiple allergies
     Dosage: FREQUENCY TEXT: NOT PROVIDED
     Route: 048
  7. Sulfa antibiotic [Concomitant]
     Indication: Multiple allergies
     Dosage: FREQUENCY TEXT: NOT PROVIDED
     Route: 048

REACTIONS (4)
  - Fatigue [Unknown]
  - Rash [Recovered/Resolved]
  - Constipation [Unknown]
  - Muscle spasms [Unknown]
